FAERS Safety Report 9105467 (Version 1)
Quarter: 2013Q1

REPORT INFORMATION
  Report Type: Spontaneous
  Country: US (occurrence: US)
  Receive Date: 20130220
  Receipt Date: 20130220
  Transmission Date: 20140127
  Serious: Yes (Other)
  Sender: FDA-Public Use
  Company Number: US-AMGEN-USASP2013011131

PATIENT
  Sex: Male
  Weight: 97.52 kg

DRUGS (1)
  1. ENBREL [Suspect]
     Indication: PSORIASIS
     Dosage: UNK
     Route: 058

REACTIONS (2)
  - Epididymitis [Recovered/Resolved]
  - Staphylococcal infection [Recovered/Resolved]
